FAERS Safety Report 10522455 (Version 2)
Quarter: 2015Q1

REPORT INFORMATION
  Report Type: Report from Study
  Country: CA (occurrence: CA)
  Receive Date: 20141016
  Receipt Date: 20150317
  Transmission Date: 20150720
  Serious: Yes (Other)
  Sender: FDA-Public Use
  Company Number: CA-ABBVIE-14K-028-1294992-00

PATIENT
  Age: 69 Year
  Sex: Female

DRUGS (1)
  1. HUMIRA [Suspect]
     Active Substance: ADALIMUMAB
     Indication: CROHN^S DISEASE
     Route: 058
     Dates: start: 20111008, end: 201409

REACTIONS (3)
  - Surgery [Unknown]
  - Colonoscopy [Unknown]
  - Procedural intestinal perforation [Not Recovered/Not Resolved]

NARRATIVE: CASE EVENT DATE: 201409
